FAERS Safety Report 13944915 (Version 1)
Quarter: 2017Q3

REPORT INFORMATION
  Report Type: Report from Study
  Country: None (occurrence: US)
  Receive Date: 20170907
  Receipt Date: 20170907
  Transmission Date: 20171128
  Serious: Yes (Hospitalization, Other)
  Sender: FDA-Public Use
  Company Number: US-ABBVIE-17K-163-2094366-00

PATIENT
  Age: 81 Year
  Sex: Female

DRUGS (1)
  1. HUMIRA [Suspect]
     Active Substance: ADALIMUMAB
     Indication: RHEUMATOID ARTHRITIS
     Route: 058
     Dates: start: 20150529

REACTIONS (6)
  - Eye infection [Recovered/Resolved]
  - Dehydration [Recovered/Resolved]
  - Haemoglobin decreased [Recovered/Resolved]
  - Ankle fracture [Recovered/Resolved]
  - Fall [Recovered/Resolved]
  - Urinary tract infection [Recovered/Resolved]

NARRATIVE: CASE EVENT DATE: 201702
